FAERS Safety Report 6304388-6 (Version None)
Quarter: 2009Q3

REPORT INFORMATION
  Report Type: 
  Country: None (occurrence: None)
  Receive Date: 20090811
  Receipt Date: 20090729
  Transmission Date: 20100115
  Serious: Yes (Other)
  Sender: FDA-Public Use
  Company Number: PHHY2009AU31982

PATIENT
  Sex: Female

DRUGS (1)
  1. CLOZARIL [Suspect]
     Dosage: 275 MG, UNK
     Dates: start: 19961112, end: 20090713

REACTIONS (1)
  - EXTRAPYRAMIDAL DISORDER [None]
